FAERS Safety Report 4535933-9 (Version None)
Quarter: 2004Q4

REPORT INFORMATION
  Report Type: 
  Country: None (occurrence: None)
  Receive Date: 20041220
  Receipt Date: 20041207
  Transmission Date: 20050328
  Serious: Yes (Other)
  Sender: FDA-Public Use
  Company Number: 2004240732US

PATIENT
  Sex: Female
  Weight: 74.3899 kg

DRUGS (4)
  1. CELEBREX [Suspect]
     Indication: ARTHRITIS
     Dosage: ORAL
     Route: 048
     Dates: start: 20020101, end: 20040901
  2. ATENOLOL [Concomitant]
  3. TRAMADOL HCL [Concomitant]
  4. PROVELLA-14 (ESTROGENS CONJUGATED, MEDROXYPROGESTERONE ACETATE) [Concomitant]

REACTIONS (5)
  - CARDIAC DISORDER [None]
  - FALL [None]
  - HEADACHE [None]
  - NECK INJURY [None]
  - PALPITATIONS [None]
